FAERS Safety Report 4488780-0 (Version None)
Quarter: 2004Q4

REPORT INFORMATION
  Report Type: 
  Country: None (occurrence: None)
  Receive Date: 20041029
  Receipt Date: 20041019
  Transmission Date: 20050328
  Serious: Yes (Hospitalization, Other)
  Sender: FDA-Public Use
  Company Number: US-JNJFOC-20040805095

PATIENT
  Sex: Female
  Weight: 65.32 kg

DRUGS (16)
  1. REMICADE [Suspect]
     Dosage: PATIENT'S FIFTH TREATMENT
     Route: 042
  2. REMICADE [Suspect]
     Route: 042
  3. REMICADE [Suspect]
     Route: 042
  4. REMICADE [Suspect]
     Route: 042
  5. REMICADE [Suspect]
     Indication: RHEUMATOID ARTHRITIS
     Route: 042
  6. LOPRESSOR [Concomitant]
     Indication: HYPERTENSION
     Route: 049
  7. LOPRESSOR [Concomitant]
     Indication: CORONARY ARTERY DISEASE
     Dosage: HAS BEEN RECEIVING TREATMENT FOR AT LEAST FIVE YEARS
     Route: 049
  8. SYNTHROID [Concomitant]
     Indication: HYPOTHYROIDISM
     Dosage: RECEIVING TREATMENT FOR AT LEAST FIVE YEARS
     Route: 049
  9. ARAVA [Concomitant]
     Indication: RHEUMATOID ARTHRITIS
     Route: 049
  10. ECOTRIN [Concomitant]
  11. TOPAMAX [Concomitant]
  12. ZETIA [Concomitant]
     Route: 049
  13. ZETIA [Concomitant]
     Route: 049
  14. DIDRONEL [Concomitant]
     Indication: OSTEOPOROSIS
     Dosage: FOR TWO WEEKS, AND THEN OFF THREE MONTHS.  HAS BEEN RECEIVING TREATMENT FOR AT LEAST FIVE YEARS
     Route: 049
  15. WELCHOL [Concomitant]
     Route: 049
  16. MECLIZINE [Concomitant]

REACTIONS (10)
  - ASTHENIA [None]
  - ATRIOVENTRICULAR BLOCK SECOND DEGREE [None]
  - BACK PAIN [None]
  - BUNDLE BRANCH BLOCK LEFT [None]
  - CHEST PAIN [None]
  - DIZZINESS [None]
  - HYPERHIDROSIS [None]
  - INFUSION RELATED REACTION [None]
  - MYOCARDIAL INFARCTION [None]
  - NAUSEA [None]
